FAERS Safety Report 5164384-1 (Version None)
Quarter: 2006Q4

REPORT INFORMATION
  Report Type: 
  Country: None (occurrence: None)
  Receive Date: 20061205
  Receipt Date: 20061124
  Transmission Date: 20070319
  Serious: Yes (Hospitalization)
  Sender: FDA-Public Use
  Company Number: AU-JNJFOC-20061003936

PATIENT
  Age: 68 Year
  Sex: Female

DRUGS (6)
  1. REMINYL [Suspect]
     Indication: DEMENTIA
  2. CALTRATE [Concomitant]
     Indication: HYPOPHOSPHATAEMIA
     Route: 048
  3. ACETAMINOPHEN [Concomitant]
     Indication: PAIN
     Route: 048
  4. COLOXYL W/SENNA [Concomitant]
     Indication: CONSTIPATION
     Route: 048
  5. POLYTEARS [Concomitant]
     Indication: DRY EYE
  6. ROCALTROL [Concomitant]
     Indication: NUTRITIONAL SUPPORT
     Route: 048

REACTIONS (2)
  - CREATININE RENAL CLEARANCE DECREASED [None]
  - PERITONEAL DIALYSIS [None]
